FAERS Safety Report 10235198 (Version 1)
Quarter: 2014Q2

REPORT INFORMATION
  Report Type: Spontaneous
  Country: IT (occurrence: IT)
  Receive Date: 20140613
  Receipt Date: 20140613
  Transmission Date: 20141212
  Serious: Yes (Other)
  Sender: FDA-Public Use
  Company Number: IT-MYLANLABS-2014S1013172

PATIENT
  Age: 3 Year
  Sex: Female

DRUGS (1)
  1. ACICLOVIR [Suspect]
     Indication: VARICELLA
     Dosage: 8 G TOTAL
     Dates: start: 20140523, end: 20140523

REACTIONS (3)
  - Accidental exposure to product by child [Recovered/Resolved]
  - Overdose [Recovered/Resolved]
  - Aspartate aminotransferase increased [Recovered/Resolved]
